FAERS Safety Report 5395297-8 (Version None)
Quarter: 2007Q3

REPORT INFORMATION
  Report Type: 
  Country: None (occurrence: None)
  Receive Date: 20070724
  Receipt Date: 20070718
  Transmission Date: 20080115
  Serious: Yes (Disabling)
  Sender: FDA-Public Use
  Company Number: CA-ASTRAZENECA-2007UW17068

PATIENT
  Age: 61 Year
  Sex: Male

DRUGS (7)
  1. CRESTOR [Suspect]
     Route: 048
  2. ZOCOR [Concomitant]
  3. AVANDAMET [Concomitant]
     Indication: DIABETES MELLITUS
  4. ADALAT CC [Concomitant]
     Indication: HYPERTENSION
  5. ASPIRIN [Concomitant]
  6. INDAPAMIDE [Concomitant]
  7. POTASSIUM CHLORIDE [Concomitant]

REACTIONS (1)
  - NEPHROLITHIASIS [None]
